FAERS Safety Report 5836806-1 (Version None)
Quarter: 2008Q3

REPORT INFORMATION
  Report Type: 
  Country: None (occurrence: None)
  Receive Date: 20080807
  Receipt Date: 20080806
  Transmission Date: 20090109
  Serious: Yes (Other)
  Sender: FDA-Public Use
  Company Number: A0735804A

PATIENT

DRUGS (1)
  1. ALLI [Suspect]
     Indication: DRUG USE FOR UNKNOWN INDICATION
     Route: 048
     Dates: start: 20080601

REACTIONS (6)
  - APATHY [None]
  - DRUG INEFFECTIVE [None]
  - GASTROENTERITIS VIRAL [None]
  - MALAISE [None]
  - MUSCLE ATROPHY [None]
  - NAUSEA [None]
